FAERS Safety Report 4889662-2 (Version None)
Quarter: 2006Q1

REPORT INFORMATION
  Report Type: 
  Country: None (occurrence: None)
  Receive Date: 20060120
  Receipt Date: 20060104
  Transmission Date: 20060701
  Serious: Yes (Other)
  Sender: FDA-Public Use
  Company Number: SHI_0020_2006

PATIENT
  Age: 3 Year
  Sex: Female

DRUGS (1)
  1. CEDAX [Suspect]
     Indication: EAR INFECTION
     Dosage: 135 MG PO
     Route: 048

REACTIONS (3)
  - ANAPHYLACTIC REACTION [None]
  - SKIN TEST POSITIVE [None]
  - TYPE I HYPERSENSITIVITY [None]
